FAERS Safety Report 5499944-1 (Version None)
Quarter: 2007Q4

REPORT INFORMATION
  Report Type: 
  Country: None (occurrence: None)
  Receive Date: 20071026
  Receipt Date: 20071019
  Transmission Date: 20080405
  Serious: Yes (Hospitalization)
  Sender: FDA-Public Use
  Company Number: IT-PFIZER INC-2007088482

PATIENT
  Sex: Female

DRUGS (4)
  1. AROMASIN [Suspect]
     Indication: BREAST CANCER
     Route: 048
  2. PRINZIDE [Concomitant]
     Route: 048
  3. PANTORC [Concomitant]
     Route: 048
  4. ZYLORIC ^FAES^ [Concomitant]
     Route: 048

REACTIONS (1)
  - RENAL CELL CARCINOMA STAGE UNSPECIFIED [None]
